FAERS Safety Report 25756494 (Version 1)
Quarter: 2025Q3

REPORT INFORMATION
  Report Type: Spontaneous
  Country: EU (occurrence: EU)
  Receive Date: 20250903
  Receipt Date: 20250903
  Transmission Date: 20251020
  Serious: Yes (Other)
  Sender: NOVO NORDISK
  Company Number: None

PATIENT
  Age: 66 Year
  Sex: Male
  Weight: 87 kg

DRUGS (2)
  1. WEGOVY [Suspect]
     Active Substance: SEMAGLUTIDE
     Indication: Type 2 diabetes mellitus
  2. WEGOVY [Suspect]
     Active Substance: SEMAGLUTIDE
     Indication: Obesity
     Dosage: 2.4 MG, QW
     Route: 058
     Dates: start: 20241101, end: 20250701

REACTIONS (7)
  - Pancreatic carcinoma metastatic [Recovered/Resolved with Sequelae]
  - Metastases to liver [Recovered/Resolved with Sequelae]
  - Apathy [Unknown]
  - Weight bearing difficulty [Unknown]
  - Sleep disorder [Unknown]
  - Infrequent bowel movements [Unknown]
  - Abdominal distension [Unknown]

NARRATIVE: CASE EVENT DATE: 20250725
